FAERS Safety Report 9407413 (Version 1)
Quarter: 2013Q3

REPORT INFORMATION
  Report Type: Spontaneous
  Country: US (occurrence: US)
  Receive Date: 20130718
  Receipt Date: 20130718
  Transmission Date: 20140515
  Serious: No
  Sender: FDA-Public Use
  Company Number: US-009507513-1307USA010111

PATIENT
  Sex: Male

DRUGS (1)
  1. COPPERTONE KIDS LOTION SPF 70+ [Suspect]
     Indication: PRODUCT USED FOR UNKNOWN INDICATION
     Dosage: UNK, UNKNOWN
     Route: 061

REACTIONS (2)
  - Application site discolouration [Not Recovered/Not Resolved]
  - Expired drug administered [Unknown]
